FAERS Safety Report 17681884 (Version 1)
Quarter: 2020Q2

REPORT INFORMATION
  Report Type: Spontaneous
  Country: US (occurrence: US)
  Receive Date: 20200417
  Receipt Date: 20200417
  Transmission Date: 20200714
  Serious: No
  Sender: FDA-Public Use
  Company Number: US-GLENMARK PHARMACEUTICALS-2020GMK046152

PATIENT

DRUGS (3)
  1. IMIQUIMOD CREAM USP, 5% [Suspect]
     Active Substance: IMIQUIMOD
     Indication: CHEILITIS
     Dosage: UNK, BID (TWICE A DAY)
     Route: 061
     Dates: start: 20200115, end: 20200202
  2. DILTIAZEM. [Concomitant]
     Active Substance: DILTIAZEM
     Indication: CARDIAC DISORDER
     Dosage: UNK
     Route: 065
  3. ELIQUIS [Concomitant]
     Active Substance: APIXABAN
     Indication: CARDIAC DISORDER
     Dosage: UNK
     Route: 065

REACTIONS (4)
  - Drug ineffective [Unknown]
  - Lip blister [Recovered/Resolved]
  - Product administered at inappropriate site [Unknown]
  - Product label issue [Unknown]

NARRATIVE: CASE EVENT DATE: 2020
